FAERS Safety Report 5516872-3 (Version None)
Quarter: 2007Q4

REPORT INFORMATION
  Report Type: 
  Country: None (occurrence: None)
  Receive Date: 20071114
  Receipt Date: 20071108
  Transmission Date: 20080405
  Serious: Yes (Other)
  Sender: FDA-Public Use
  Company Number: A0680111A

PATIENT

DRUGS (1)
  1. ALLI [Suspect]
     Route: 048

REACTIONS (13)
  - ABDOMINAL PAIN UPPER [None]
  - ABNORMAL FAECES [None]
  - DIARRHOEA [None]
  - DRUG INEFFECTIVE [None]
  - DRY MOUTH [None]
  - FAECAL INCONTINENCE [None]
  - FLATULENCE [None]
  - FRUSTRATION [None]
  - GASTROINTESTINAL DISORDER [None]
  - HEADACHE [None]
  - RECTAL DISCHARGE [None]
  - STEATORRHOEA [None]
  - THIRST [None]
